FAERS Safety Report 11291907 (Version 1)
Quarter: 2015Q3

REPORT INFORMATION
  Report Type: Spontaneous
  Country: US (occurrence: None)
  Receive Date: 20150721
  Receipt Date: 20150721
  Transmission Date: 20151125
  Serious: Yes (Other)
  Sender: FDA-Public Use
  Company Number: None

PATIENT
  Sex: Female

DRUGS (1)
  1. IBRANCE [Suspect]
     Active Substance: PALBOCICLIB
     Indication: BREAST CANCER
     Dosage: 1 QD FOR 21 DAYS, THEN 7 DAYS OFF
     Route: 048
     Dates: start: 20150529

REACTIONS (3)
  - Inflammation [None]
  - Alopecia [None]
  - Rash [None]
